FAERS Safety Report 10524631 (Version 1)
Quarter: 2014Q4

REPORT INFORMATION
  Report Type: Spontaneous
  Country: US (occurrence: None)
  Receive Date: 20141015
  Receipt Date: 20141015
  Transmission Date: 20150528
  Serious: No
  Sender: FDA-Public Use
  Company Number: None

PATIENT
  Age: 41 Year
  Sex: Female
  Weight: 97.52 kg

DRUGS (1)
  1. AZITHROMYCIN [Suspect]
     Active Substance: AZITHROMYCIN ANHYDROUS
     Indication: SINUSITIS
     Dosage: 2 FOR FIRST DAY, 1 FOR 4 DAYS ONCE DAILY TAKEN BY MOUTH
     Dates: start: 20100815, end: 20120818

REACTIONS (1)
  - Rash [None]

NARRATIVE: CASE EVENT DATE: 20100815
